FAERS Safety Report 21997562 (Version 1)
Quarter: 2023Q1

REPORT INFORMATION
  Report Type: Spontaneous
  Country: US (occurrence: US)
  Receive Date: 20230216
  Receipt Date: 20230216
  Transmission Date: 20230417
  Serious: Yes (Other)
  Sender: FDA-Public Use
  Company Number: US-AMERICAN REGENT INC-2023000346

PATIENT

DRUGS (9)
  1. BUSULFAN [Suspect]
     Active Substance: BUSULFAN
     Indication: Bone marrow conditioning regimen
     Dosage: OVER 3 H ONCE DAILY ON DAYS -6 TO -3; 3.2 MG/KG/DAY ON DAYS -6,-5; TARGET AUC GREATER THAN, EQUAL TO
     Route: 042
  2. FLUDARABINE [Suspect]
     Active Substance: FLUDARABINE PHOSPHATE
     Indication: Allogenic stem cell transplantation
     Dosage: 40 MG/M2/DAY OVER 30 MIN ON DAYS -6 TO -3
     Route: 042
  3. TACROLIMUS [Concomitant]
     Active Substance: TACROLIMUS
     Indication: Prophylaxis against graft versus host disease
     Dosage: STARTING ON DAY -3; DOSES ADJUSTED TO MAINTAIN SERUM LEVELS OF 5-15 NG/ML
     Route: 065
  4. TACROLIMUS [Concomitant]
     Active Substance: TACROLIMUS
     Dosage: WEANED OF STARTING ON DAY+100 IF NO SIGNS OF GVHD WERE PRESENT
     Route: 065
  5. METHOTREXATE [Concomitant]
     Active Substance: METHOTREXATE
     Indication: Prophylaxis against graft versus host disease
     Dosage: DAYS +1, +3, +6, AND +11
     Route: 065
  6. LEVETIRACETAM [Concomitant]
     Active Substance: LEVETIRACETAM
     Indication: Seizure prophylaxis
     Dosage: 500 MILLIGRAM EVERY 12 H STARTING 12 H BEFORE AND CONTINUING UNTIL 24 H AFTER BUSULFAN ADMINISTRATIO
     Route: 048
  7. URSODIOL [Concomitant]
     Active Substance: URSODIOL
     Indication: Venoocclusive disease
     Dosage: 300 MILLIGRAM, BID
     Route: 048
  8. URSODIOL [Concomitant]
     Active Substance: URSODIOL
     Indication: Prophylaxis
  9. GRANULOCYTE COLONY-STIMULATING FACTOR NOS [Concomitant]
     Active Substance: GRANULOCYTE COLONY-STIMULATING FACTOR NOS
     Indication: Product used for unknown indication
     Dosage: STARTING ON DAY +5.
     Route: 065

REACTIONS (2)
  - Congestive cardiomyopathy [Unknown]
  - Off label use [Unknown]
